FAERS Safety Report 4798188-6 (Version None)
Quarter: 2005Q4

REPORT INFORMATION
  Report Type: 
  Country: None (occurrence: None)
  Receive Date: 20051011
  Receipt Date: 20050928
  Transmission Date: 20060501
  Serious: Yes (Hospitalization)
  Sender: FDA-Public Use
  Company Number: 2005PV002525

PATIENT
  Age: 70 Year
  Sex: Male
  Weight: 113.3993 kg

DRUGS (2)
  1. BYETTA [Suspect]
     Indication: DIABETES MELLITUS NON-INSULIN-DEPENDENT
     Dosage: SC
     Route: 058
     Dates: start: 20050601
  2. ANTI-DIABETICS [Concomitant]

REACTIONS (10)
  - ABASIA [None]
  - DYSSTASIA [None]
  - ERYTHEMA [None]
  - NECROSIS [None]
  - OEDEMA PERIPHERAL [None]
  - OSTEOMYELITIS [None]
  - PAIN IN EXTREMITY [None]
  - SKIN DISCOLOURATION [None]
  - TOE AMPUTATION [None]
  - WEIGHT DECREASED [None]
